FAERS Safety Report 9545738 (Version 2)
Quarter: 2014Q1

REPORT INFORMATION
  Report Type: Spontaneous
  Country: GB (occurrence: GB)
  Receive Date: 20130923
  Receipt Date: 20140206
  Transmission Date: 20141002
  Serious: Yes (Death, Hospitalization, Other)
  Sender: FDA-Public Use
  Company Number: GB-ACTAVIS-2013-16494

PATIENT
  Age: 68 Year
  Sex: Female
  Weight: 78 kg

DRUGS (1)
  1. PACLITAXEL ACCORD HEALTHCARE ITALIA [Suspect]
     Indication: BREAST CANCER METASTATIC
     Dosage: 264 MG, CYCLICAL; DOSE: 175 MG/M2, C1D1, ALSO RECEIVED ON 03-JUL-2013
     Route: 042
     Dates: start: 20130628, end: 20130628

REACTIONS (6)
  - Septic shock [Fatal]
  - Neutropenic sepsis [Fatal]
  - Multi-organ failure [Fatal]
  - Supraventricular tachycardia [Not Recovered/Not Resolved]
  - Haemoglobin decreased [Unknown]
  - Diarrhoea [Recovered/Resolved]
